FAERS Safety Report 4691191-6 (Version None)
Quarter: 2005Q2

REPORT INFORMATION
  Report Type: 
  Country: None (occurrence: None)
  Receive Date: 20050610
  Receipt Date: 20050602
  Transmission Date: 20051028
  Serious: Yes (Hospitalization)
  Sender: FDA-Public Use
  Company Number: 214067

PATIENT
  Age: 42 Year
  Sex: Male

DRUGS (2)
  1. XOLAIR [Suspect]
     Indication: ASTHMA
     Dates: start: 20041201, end: 20050401
  2. UNKNOWN MEDICATIN (GENERIC COMPONENT(S)  NOT KNOWN) [Concomitant]

REACTIONS (1)
  - RENAL FAILURE ACUTE [None]
